FAERS Safety Report 6719487-4 (Version None)
Quarter: 2010Q2

REPORT INFORMATION
  Report Type: 
  Country: None (occurrence: None)
  Receive Date: 20100511
  Receipt Date: 20100429
  Transmission Date: 20101027
  Serious: Yes (Other)
  Sender: FDA-Public Use
  Company Number: DE-ROCHE-697026

PATIENT
  Age: 71 Year
  Sex: Female
  Weight: 60 kg

DRUGS (2)
  1. BONIVA [Suspect]
     Indication: OSTEOPOROSIS
     Route: 042
     Dates: start: 20100108
  2. BISOPROLOL [Concomitant]
     Indication: TACHYCARDIA
     Route: 048
     Dates: start: 20100122

REACTIONS (2)
  - GASTROINTESTINAL DISORDER [None]
  - WEIGHT DECREASED [None]
